FAERS Safety Report 5104706-0 (Version None)
Quarter: 2006Q3

REPORT INFORMATION
  Report Type: 
  Country: None (occurrence: None)
  Receive Date: 20060731
  Receipt Date: 20050602
  Transmission Date: 20061208
  Serious: Yes (Other)
  Sender: FDA-Public Use
  Company Number: US-JNJFOC-20050601473

PATIENT
  Sex: Female

DRUGS (2)
  1. RISPERDAL [Suspect]
     Indication: PSYCHOTIC DISORDER
  2. REMINYL (UNSPECIFIED) GALANTAMINE HBR [Concomitant]

REACTIONS (2)
  - COMA [None]
  - HYPOKINESIA [None]
